APPROVED DRUG PRODUCT: BACLOFEN
Active Ingredient: BACLOFEN
Strength: 20MG
Dosage Form/Route: TABLET;ORAL
Application: A077121 | Product #002
Applicant: PHARMOBEDIENT CONSULTING LLC
Approved: Jul 29, 2005 | RLD: No | RS: No | Type: DISCN